FAERS Safety Report 9084136 (Version 1)
Quarter: 2013Q1

REPORT INFORMATION
  Report Type: Report from Study
  Country: US (occurrence: US)
  Receive Date: 20130130
  Receipt Date: 20130130
  Transmission Date: 20140127
  Serious: No
  Sender: FDA-Public Use
  Company Number: US-ABBOTT-12P-163-0981283-00

PATIENT
  Age: 54 Year
  Sex: Female

DRUGS (16)
  1. HUMIRA [Suspect]
     Indication: RHEUMATOID ARTHRITIS
     Dates: start: 20120902, end: 20120902
  2. METFORMIN XR [Concomitant]
     Indication: PRODUCT USED FOR UNKNOWN INDICATION
     Route: 048
  3. GLYBURIDE [Concomitant]
     Indication: PRODUCT USED FOR UNKNOWN INDICATION
     Route: 048
  4. LANTUS [Concomitant]
     Indication: PRODUCT USED FOR UNKNOWN INDICATION
  5. HUMALOG [Concomitant]
     Indication: DIABETES MELLITUS
     Dosage: ON SLIDING SCALE
  6. LYRICA [Concomitant]
     Indication: NEUROPATHY PERIPHERAL
     Route: 048
  7. CYMBALTA [Concomitant]
     Indication: DEPRESSION
     Dosage: 90MG DAILY
     Route: 048
  8. LISINOPRIL [Concomitant]
     Indication: HYPERTENSION
     Dosage: 20MG DAILY
     Route: 048
  9. PRAVASTATIN [Concomitant]
     Indication: BLOOD CHOLESTEROL INCREASED
     Dosage: 40MG DAILY
     Route: 048
  10. ARAVA [Concomitant]
     Indication: RHEUMATOID ARTHRITIS
  11. PLAQUENIL [Concomitant]
     Indication: RHEUMATOID ARTHRITIS
  12. BUSPIRONE [Concomitant]
     Indication: ANXIETY
     Route: 048
  13. VITAMIN D [Concomitant]
     Indication: PRODUCT USED FOR UNKNOWN INDICATION
  14. ASA [Concomitant]
     Indication: PRODUCT USED FOR UNKNOWN INDICATION
  15. VITAMIN B-12 [Concomitant]
     Indication: VITAMIN SUPPLEMENTATION
  16. NEBULIZER TREATMENTS [Concomitant]
     Indication: PRODUCT USED FOR UNKNOWN INDICATION

REACTIONS (1)
  - Productive cough [Not Recovered/Not Resolved]
